FAERS Safety Report 5342407-4 (Version None)
Quarter: 2007Q2

REPORT INFORMATION
  Report Type: 
  Country: None (occurrence: None)
  Receive Date: 20070416
  Receipt Date: 20070223
  Transmission Date: 20071010
  Serious: No
  Sender: FDA-Public Use
  Company Number: 2007SP000615

PATIENT
  Age: 69 Year
  Sex: Female
  Weight: 80.7403 kg

DRUGS (18)
  1. LUNESTA [Suspect]
     Indication: INSOMNIA
     Dosage: 3 MG; HS; ORAL
     Route: 048
     Dates: start: 20070220
  2. LOTENSIN [Concomitant]
  3. MINOXIDIL [Concomitant]
  4. ATENOLOL [Concomitant]
  5. TEGASEROD MALEATE [Concomitant]
  6. ISORDIL [Concomitant]
  7. NEURONTIN [Concomitant]
  8. AMITRIPTYLINE HCL [Concomitant]
  9. ATORVASTATIN CALCIUM [Concomitant]
  10. PREVACID [Concomitant]
  11. AMLODIPINE BESYLATE [Concomitant]
  12. RELAFEN [Concomitant]
  13. FEMARA [Concomitant]
  14. MELOXICAM [Concomitant]
  15. BACLOFEN [Concomitant]
  16. LASIX [Concomitant]
  17. DIGITEK [Concomitant]
  18. ASPIRIN [Concomitant]

REACTIONS (2)
  - DRUG INEFFECTIVE [None]
  - INITIAL INSOMNIA [None]
